FAERS Safety Report 4422466-3 (Version None)
Quarter: 2004Q3

REPORT INFORMATION
  Report Type: 
  Country: None (occurrence: None)
  Receive Date: 20040806
  Receipt Date: 20040720
  Transmission Date: 20050211
  Serious: Yes (Other)
  Sender: FDA-Public Use
  Company Number: USA030125943

PATIENT
  Age: 79 Year
  Sex: Female
  Weight: 70 kg

DRUGS (7)
  1. FORTEO [Suspect]
     Indication: BONE DENSITY DECREASED
     Dosage: 20 UG DAY
     Dates: start: 20030108
  2. FORTEO [Suspect]
     Indication: OSTEOPOROSIS
     Dosage: 20 UG DAY
     Dates: start: 20030108
  3. ACTONEL [Concomitant]
  4. BETAPACE [Concomitant]
  5. CALCIUM [Concomitant]
  6. LIPITOR [Concomitant]
  7. PREMPRO (PREMARIN;CYCRIN 14/14) [Concomitant]

REACTIONS (5)
  - BLOOD CALCIUM INCREASED [None]
  - DIZZINESS [None]
  - FATIGUE [None]
  - VERTIGO [None]
  - VIRAL INFECTION [None]
